FAERS Safety Report 11025748 (Version 1)
Quarter: 2015Q2

REPORT INFORMATION
  Report Type: Spontaneous
  Country: US (occurrence: US)
  Receive Date: 20150414
  Receipt Date: 20150414
  Transmission Date: 20150821
  Serious: No
  Sender: FDA-Public Use
  Company Number: US-TEVA-534653USA

PATIENT
  Sex: Female

DRUGS (1)
  1. AVIANE [Suspect]
     Active Substance: ETHINYL ESTRADIOL\LEVONORGESTREL
     Indication: ORAL CONTRACEPTION
     Route: 048
     Dates: start: 20141228, end: 20150110

REACTIONS (4)
  - Dyspepsia [Unknown]
  - Nausea [Unknown]
  - Abdominal distension [Unknown]
  - Constipation [Unknown]
